FAERS Safety Report 5912108-X (Version None)
Quarter: 2008Q4

REPORT INFORMATION
  Report Type: 
  Country: None (occurrence: None)
  Receive Date: 20081008
  Receipt Date: 20081001
  Transmission Date: 20090506
  Serious: Yes (Other)
  Sender: FDA-Public Use
  Company Number: US-ROCHE-588970

PATIENT
  Age: 70 Year
  Sex: Male

DRUGS (1)
  1. BONIVA [Suspect]
     Indication: DRUG USE FOR UNKNOWN INDICATION
     Route: 048
     Dates: start: 20080807

REACTIONS (4)
  - FALL [None]
  - HICCUPS [None]
  - HUMERUS FRACTURE [None]
  - INSOMNIA [None]
